FAERS Safety Report 9297005 (Version 1)
Quarter: 2013Q2

REPORT INFORMATION
  Report Type: Spontaneous
  Country: US (occurrence: US)
  Receive Date: 20130519
  Receipt Date: 20130519
  Transmission Date: 20140414
  Serious: No
  Sender: FDA-Public Use
  Company Number: US-009507513-1305USA009791

PATIENT
  Sex: Female

DRUGS (2)
  1. PEGINTRON [Suspect]
     Dosage: 0.5 ML ONCE WEEKLY
     Route: 058
     Dates: start: 20121031
  2. REBETOL [Suspect]
     Route: 048

REACTIONS (1)
  - Alopecia [Unknown]
